FAERS Safety Report 7419897-6 (Version None)
Quarter: 2011Q2

REPORT INFORMATION
  Report Type: 
  Country: None (occurrence: None)
  Receive Date: 20110418
  Receipt Date: 20110330
  Transmission Date: 20111010
  Serious: Yes (Death, Other)
  Sender: FDA-Public Use
  Company Number: US-BAYER-200934399NA

PATIENT
  Age: 70 Year
  Sex: Male
  Weight: 149.66 kg

DRUGS (25)
  1. ATACAND HCT [Concomitant]
     Dosage: 60 MG, BID
     Route: 048
  2. TRASYLOL [Suspect]
     Indication: CORONARY ARTERY BYPASS
     Dosage: 20 ML, Q1HR
     Route: 042
     Dates: start: 20040122, end: 20040122
  3. TRASYLOL [Suspect]
     Indication: MITRAL VALVE REPAIR
     Dosage: 50ML/HR
     Dates: start: 20040122, end: 20040122
  4. LASIX [Concomitant]
     Dosage: 40 MG, QD
     Route: 048
  5. LASIX [Concomitant]
     Dosage: 30 MG, UNK
     Route: 042
     Dates: start: 20040122
  6. AMIODARONE HCL [Concomitant]
     Dosage: 15 MG, UNK
     Route: 042
  7. GLUCOVANCE [Concomitant]
     Dosage: 1.25/250MG QD
     Route: 048
  8. NORVASC [Concomitant]
     Dosage: 10 MG, QD
     Route: 048
  9. K-DUR [Concomitant]
     Dosage: 10 MEQ, QD
     Route: 048
  10. MORPHINE [Concomitant]
     Dosage: 10 MG, UNK
     Route: 042
     Dates: start: 20040122
  11. PROPOFOL [Concomitant]
     Dosage: 20 MG, UNK
     Route: 042
     Dates: start: 20040122
  12. REGLAN [Concomitant]
     Dosage: UNK
     Route: 042
     Dates: start: 20040122
  13. NIACIN [Concomitant]
     Dosage: 500 MG, QD
     Route: 048
  14. DARVOCET [Concomitant]
     Dosage: AS NEEDED
     Route: 048
  15. VERSED [Concomitant]
     Dosage: 25 MG, UNK
     Route: 042
     Dates: start: 20040122
  16. LIPITOR [Concomitant]
     Dosage: 10 MG, QD
     Route: 048
  17. CELEBREX [Concomitant]
     Dosage: 200 MG, QD
     Route: 048
  18. FENTANYL [Concomitant]
     Dosage: 20 ML, UNK
     Route: 042
     Dates: start: 20040122
  19. PANCURONIUM BROMIDE [Concomitant]
     Dosage: 30 MG, UNK
     Route: 042
     Dates: start: 20040122
  20. VASOPRESSIN [Concomitant]
     Dosage: UNK
     Route: 042
     Dates: start: 20040122
  21. EPINEPHRINE [Concomitant]
     Dosage: 45 MG, UNK
     Route: 042
     Dates: start: 20040122
  22. HYTRIN [Concomitant]
     Dosage: 5 MG, QD
     Route: 048
  23. ZINACEF [Concomitant]
     Dosage: UNK
     Route: 042
     Dates: start: 20040122
  24. LEVOPHED [Concomitant]
     Dosage: 45 MG, UNK
     Route: 042
     Dates: start: 20040122
  25. INSULIN [Concomitant]
     Dosage: UNK
     Route: 041
     Dates: start: 20040122

REACTIONS (14)
  - INJURY [None]
  - FEAR [None]
  - DISABILITY [None]
  - MULTI-ORGAN FAILURE [None]
  - DEPRESSION [None]
  - NERVOUSNESS [None]
  - EMOTIONAL DISTRESS [None]
  - UNEVALUABLE EVENT [None]
  - PAIN [None]
  - DEATH [None]
  - RENAL INJURY [None]
  - ANHEDONIA [None]
  - RENAL FAILURE [None]
  - ANXIETY [None]
